FAERS Safety Report 9919577 (Version 1)
Quarter: 2014Q1

REPORT INFORMATION
  Report Type: Spontaneous
  Country: NL (occurrence: NL)
  Receive Date: 20140224
  Receipt Date: 20140224
  Transmission Date: 20141002
  Serious: Yes (Hospitalization)
  Sender: FDA-Public Use
  Company Number: PHHY2014NL020620

PATIENT
  Age: 83 Year
  Sex: Female

DRUGS (1)
  1. METFORMIN [Suspect]

REACTIONS (3)
  - Hypomagnesaemia [Unknown]
  - Hypocalcaemia [Unknown]
  - Diarrhoea [Recovered/Resolved]
